FAERS Safety Report 10269641 (Version 1)
Quarter: 2014Q2

REPORT INFORMATION
  Report Type: Spontaneous
  Country: US (occurrence: None)
  Receive Date: 20140626
  Receipt Date: 20140626
  Transmission Date: 20141212
  Serious: Yes (Other)
  Sender: FDA-Public Use
  Company Number: None

PATIENT
  Age: 60 Year
  Sex: Male
  Weight: 83.92 kg

DRUGS (2)
  1. DOXAZOSIN [Suspect]
     Indication: URINARY RETENTION
     Dosage: 1 TAB PER DAY ONCE DAILY TAKEN BY MOUTH
     Route: 048
     Dates: start: 20140611, end: 20140623
  2. DOXAZOSIN [Suspect]
     Indication: BENIGN PROSTATIC HYPERPLASIA
     Dosage: 1 TAB PER DAY ONCE DAILY TAKEN BY MOUTH
     Route: 048
     Dates: start: 20140611, end: 20140623

REACTIONS (2)
  - Drug ineffective [None]
  - Product substitution issue [None]
